FAERS Safety Report 4487754-3 (Version None)
Quarter: 2004Q4

REPORT INFORMATION
  Report Type: 
  Country: None (occurrence: None)
  Receive Date: 20041027
  Receipt Date: 20041027
  Transmission Date: 20050328
  Serious: Yes (Hospitalization)
  Sender: FDA-Public Use
  Company Number: None

PATIENT
  Age: 57 Year
  Weight: 109.7705 kg

DRUGS (13)
  1. RIBAVIRIN  PO [Suspect]
     Indication: HEPATITIS C
     Dosage: 600 MG QAM, 400 MG QPM
     Route: 048
  2. INTERFERON SC [Suspect]
     Dosage: 180 QWK
     Route: 058
  3. NPH INSULIN [Concomitant]
  4. GLIPIZIDE [Concomitant]
  5. FOSINOPRIL SODIUM [Concomitant]
  6. ATENOLOL [Concomitant]
  7. ASPIRIN [Concomitant]
  8. GABAPENTIN [Concomitant]
  9. RISPERIDONE [Concomitant]
  10. MIRTAZAPINE [Concomitant]
  11. CYPROHEPTADINE HCL [Concomitant]
  12. LASIX [Concomitant]
  13. M.V.I. [Concomitant]

REACTIONS (3)
  - DIZZINESS [None]
  - FATIGUE [None]
  - NORMOCHROMIC NORMOCYTIC ANAEMIA [None]
